FAERS Safety Report 6389447-4 (Version None)
Quarter: 2009Q4

REPORT INFORMATION
  Report Type: 
  Country: None (occurrence: None)
  Receive Date: 20091006
  Receipt Date: 20090924
  Transmission Date: 20100525
  Serious: Yes (Hospitalization)
  Sender: FDA-Public Use
  Company Number: US-ELI_LILLY_AND_COMPANY-US200909005958

PATIENT
  Sex: Female

DRUGS (6)
  1. FORTEO [Suspect]
     Indication: OSTEOPOROSIS
     Dates: start: 20081101
  2. KLOR-CON [Concomitant]
  3. LASIX [Concomitant]
  4. CALCIUM W/VITAMIN D NOS [Concomitant]
  5. VITAMIN E /00110501/ [Concomitant]
  6. CHONDROITIN W/GLUCOSAMINE [Concomitant]

REACTIONS (5)
  - CHOLECYSTECTOMY [None]
  - CHOLELITHIASIS [None]
  - HERNIA [None]
  - PNEUMONIA [None]
  - POSTOPERATIVE ADHESION [None]
